FAERS Safety Report 10026123 (Version 2)
Quarter: 2014Q1

REPORT INFORMATION
  Report Type: Spontaneous
  Country: US (occurrence: US)
  Receive Date: 20140320
  Receipt Date: 20140320
  Transmission Date: 20141002
  Serious: No
  Sender: FDA-Public Use
  Company Number: US-ALLERGAN-1404007US

PATIENT
  Sex: Female

DRUGS (3)
  1. LUMIGAN 0.01% [Suspect]
     Indication: GLAUCOMA
     Dosage: 2 GTT, QHS
     Route: 047
  2. COMBIGAN[R] [Suspect]
     Indication: GLAUCOMA
     Dosage: 1 GTT, BID
     Route: 047
  3. SYSTANE [Concomitant]
     Indication: EYE LUBRICATION THERAPY
     Dosage: 2 GTT, PRN
     Route: 047
     Dates: start: 2013

REACTIONS (2)
  - Dacryostenosis acquired [Not Recovered/Not Resolved]
  - Lacrimation increased [Unknown]
